FAERS Safety Report 5602019-1 (Version None)
Quarter: 2008Q1

REPORT INFORMATION
  Report Type: 
  Country: None (occurrence: None)
  Receive Date: 20080122
  Receipt Date: 20080122
  Transmission Date: 20080703
  Serious: Yes (Other)
  Sender: FDA-Public Use
  Company Number: None

PATIENT
  Age: 47 Year
  Sex: Female
  Weight: 61.2356 kg

DRUGS (1)
  1. ZOMIG [Suspect]
     Indication: MIGRAINE
     Dosage: 1 SPRAY = 5 MG PRN NASAL
     Route: 045

REACTIONS (2)
  - CHEST DISCOMFORT [None]
  - SENSATION OF HEAVINESS [None]
